FAERS Safety Report 5019177-2 (Version None)
Quarter: 2006Q2

REPORT INFORMATION
  Report Type: 
  Country: None (occurrence: None)
  Receive Date: 20060531
  Receipt Date: 20060517
  Transmission Date: 20061013
  Serious: Yes (Life-Threatening)
  Sender: FDA-Public Use
  Company Number: 2006RR-02348

PATIENT
  Age: 63 Year
  Sex: Female
  Weight: 63 kg

DRUGS (2)
  1. CEFACLOR [Suspect]
     Indication: URINARY TRACT INFECTION
     Dosage: 250 MG, ORAL
     Route: 048
     Dates: start: 20060425, end: 20060425
  2. RALOXIFENE [Concomitant]

REACTIONS (4)
  - DYSPHONIA [None]
  - FALL [None]
  - LOSS OF CONSCIOUSNESS [None]
  - RASH PRURITIC [None]
